FAERS Safety Report 6854147-0 (Version None)
Quarter: 2010Q3

REPORT INFORMATION
  Report Type: 
  Country: None (occurrence: None)
  Receive Date: 20100717
  Receipt Date: 20071227
  Transmission Date: 20110219
  Serious: No
  Sender: FDA-Public Use
  Company Number: US-PFIZER INC-2007108842

PATIENT
  Sex: Male
  Weight: 91 kg

DRUGS (4)
  1. CHANTIX [Suspect]
     Indication: EX-TOBACCO USER
     Dates: start: 20071126, end: 20071219
  2. NEXIUM [Concomitant]
  3. VALIUM [Concomitant]
  4. TRAMADOL [Concomitant]

REACTIONS (5)
  - AGGRESSION [None]
  - ANXIETY [None]
  - DEPRESSION [None]
  - DISORIENTATION [None]
  - INSOMNIA [None]
